FAERS Safety Report 19951055 (Version 1)
Quarter: 2021Q4

REPORT INFORMATION
  Report Type: Spontaneous
  Country: RU (occurrence: RU)
  Receive Date: 20211013
  Receipt Date: 20211013
  Transmission Date: 20220303
  Serious: Yes (Other)
  Sender: FDA-Public Use
  Company Number: RU-BAYER-2021A226027

PATIENT

DRUGS (2)
  1. ADEMPAS [Suspect]
     Active Substance: RIOCIGUAT
     Dosage: 1.5 MG
  2. ADEMPAS [Suspect]
     Active Substance: RIOCIGUAT
     Dosage: 1 UNK

REACTIONS (3)
  - Respiratory tract infection [None]
  - Pyrexia [None]
  - Headache [None]
